FAERS Safety Report 4443623-6 (Version None)
Quarter: 2004Q3

REPORT INFORMATION
  Report Type: 
  Country: None (occurrence: None)
  Receive Date: 20040903
  Receipt Date: 20040903
  Transmission Date: 20050211
  Serious: Yes (Hospitalization)
  Sender: FDA-Public Use
  Company Number: None

PATIENT
  Age: 80 Year
  Sex: Female
  Weight: 67.58 kg

DRUGS (1)
  1. INTEGRELIN 75 MG/100 ML MILLENIUM [Suspect]
     Indication: CORONARY ANGIOPLASTY
     Dosage: 11 ML/HR CONT INFU INTRAVENOUS
     Route: 042
     Dates: start: 20040802, end: 20040802

REACTIONS (2)
  - INFUSION RELATED REACTION [None]
  - THROMBOCYTOPENIA [None]
